FAERS Safety Report 10068479 (Version 2)
Quarter: 2014Q2

REPORT INFORMATION
  Report Type: Spontaneous
  Country: FR (occurrence: FR)
  Receive Date: 20140409
  Receipt Date: 20140409
  Transmission Date: 20141212
  Serious: Yes (Hospitalization, Other)
  Sender: FDA-Public Use
  Company Number: FR-ASTRAZENECA-2014SE18210

PATIENT
  Age: 569 Month
  Sex: Male

DRUGS (11)
  1. INEXIUM [Suspect]
     Route: 048
     Dates: start: 20131226, end: 20140129
  2. INEXIUM [Suspect]
     Route: 048
     Dates: start: 201402
  3. PROGRAF [Suspect]
     Indication: RENAL TRANSPLANT
     Route: 048
     Dates: start: 20131226, end: 20140129
  4. CELLCEPT [Suspect]
     Indication: RENAL TRANSPLANT
     Route: 048
     Dates: start: 20131226, end: 20140120
  5. MYFORTIC [Suspect]
     Indication: RENAL TRANSPLANT
     Route: 048
     Dates: start: 20140120, end: 20140128
  6. PENTACARINAT [Suspect]
     Indication: ANTIFUNGAL PROPHYLAXIS
     Route: 055
     Dates: start: 20140106
  7. CORTANCYL [Suspect]
     Indication: RENAL TRANSPLANT
     Route: 048
     Dates: start: 20131226
  8. OFLOCET [Suspect]
     Indication: PROSTATITIS
     Route: 065
     Dates: start: 20131231, end: 20140127
  9. COLCHIMAX [Suspect]
     Indication: GOUT
     Route: 048
     Dates: start: 20140104, end: 20140110
  10. SIMULECT [Concomitant]
     Dates: start: 20131224
  11. SIMULECT [Concomitant]
     Dates: start: 20131228

REACTIONS (10)
  - Pancreatitis [Recovered/Resolved]
  - Intussusception [Unknown]
  - General physical health deterioration [Unknown]
  - Weight decreased [Unknown]
  - Human herpesvirus 6 infection [Unknown]
  - Hepatitis cholestatic [Recovered/Resolved]
  - Prostatitis [Unknown]
  - Gout [Unknown]
  - Decreased appetite [Unknown]
  - Asthenia [Unknown]
